FAERS Safety Report 5147191-5 (Version None)
Quarter: 2006Q4

REPORT INFORMATION
  Report Type: 
  Country: None (occurrence: None)
  Receive Date: 20061103
  Receipt Date: 20061020
  Transmission Date: 20070319
  Serious: Yes (Death, Other)
  Sender: FDA-Public Use
  Company Number: 2006JP003507

PATIENT
  Age: 60 Year
  Sex: Male
  Weight: 85 kg

DRUGS (16)
  1. PROGRAF [Suspect]
     Indication: LIVER TRANSPLANT
     Dosage: SEE IMAGE
     Dates: end: 20040530
  2. PROGRAF [Suspect]
     Indication: LIVER TRANSPLANT
     Dosage: SEE IMAGE
     Dates: start: 20040531, end: 20040620
  3. PROGRAF [Suspect]
     Indication: LIVER TRANSPLANT
     Dosage: SEE IMAGE
     Dates: start: 20040621, end: 20040621
  4. PROGRAF [Suspect]
     Indication: LIVER TRANSPLANT
     Dosage: SEE IMAGE
     Dates: start: 20040622, end: 20040622
  5. PREDNISOLONE [Suspect]
     Indication: LIVER TRANSPLANT
     Dosage: SEE IMAGE
     Dates: start: 20040522, end: 20040522
  6. PREDNISOLONE [Suspect]
     Indication: LIVER TRANSPLANT
     Dosage: SEE IMAGE
     Dates: end: 20040530
  7. PREDNISOLONE [Suspect]
     Indication: LIVER TRANSPLANT
     Dosage: SEE IMAGE
     Dates: start: 20040531, end: 20040621
  8. PREDNISOLONE [Suspect]
     Indication: LIVER TRANSPLANT
     Dosage: SEE IMAGE
     Dates: start: 20040522, end: 20040522
  9. METHYLPREDNISOLONE [Suspect]
     Indication: LIVER TRANSPLANT
     Dosage: SEE IMAGE
     Dates: start: 20040611, end: 20040613
  10. METHYLPREDNISOLONE [Suspect]
     Indication: LIVER TRANSPLANT
     Dosage: SEE IMAGE
     Dates: start: 20040623, end: 20040624
  11. AZATHIOPRINE [Concomitant]
  12. CYCLOPHOSPHAMIDE [Concomitant]
  13. PROSTAGLANDIN E1(ALPROSTADIL) INJECTION [Concomitant]
  14. FOY (GABEXATE MESILATE) [Concomitant]
  15. RITUXIMAB (RITUXIMAB) [Concomitant]
  16. RITUXIMAB (RITUXIMAB) [Concomitant]

REACTIONS (10)
  - DISSEMINATED INTRAVASCULAR COAGULATION [None]
  - HEPATIC FAILURE [None]
  - HEPATIC HAEMATOMA [None]
  - HEPATIC INFARCTION [None]
  - HEPATIC NECROSIS [None]
  - INFECTION [None]
  - INFLAMMATION [None]
  - PORTAL VEIN THROMBOSIS [None]
  - POST PROCEDURAL HAEMORRHAGE [None]
  - TRANSPLANT REJECTION [None]
